FAERS Safety Report 9693761 (Version 1)
Quarter: 2013Q4

REPORT INFORMATION
  Report Type: Spontaneous
  Country: CA (occurrence: CA)
  Receive Date: 20131118
  Receipt Date: 20131118
  Transmission Date: 20140711
  Serious: Yes (Hospitalization)
  Sender: FDA-Public Use
  Company Number: PHHY2013CA129910

PATIENT
  Age: 60 Year
  Sex: Male
  Weight: 86 kg

DRUGS (10)
  1. CUBICIN [Suspect]
     Dosage: 480 MG, QD
     Route: 042
  2. PIPERACILLIN, TAZOBACTAM [Suspect]
     Dosage: 3.375 MG, Q6H
     Route: 042
  3. ASA [Concomitant]
  4. ATORVASTATIN [Concomitant]
  5. DIAZEPAM [Concomitant]
  6. HYDROMORPHONE [Concomitant]
  7. OXYCODONE [Concomitant]
  8. SALBUTAMOL [Concomitant]
  9. SPIRIVA [Concomitant]
  10. SYMBICORT [Concomitant]

REACTIONS (7)
  - Arthralgia [Recovered/Resolved]
  - C-reactive protein increased [Recovered/Resolved]
  - Dyspnoea [Recovered/Resolved]
  - Eosinophil count increased [Recovered/Resolved]
  - Eosinophilic pneumonia [Recovered/Resolved]
  - Fatigue [Recovered/Resolved]
  - Lung infiltration [Recovered/Resolved]
